FAERS Safety Report 4440437-8 (Version None)
Quarter: 2004Q3

REPORT INFORMATION
  Report Type: 
  Country: None (occurrence: None)
  Receive Date: 20040728
  Receipt Date: 20040408
  Transmission Date: 20050211
  Serious: No
  Sender: FDA-Public Use
  Company Number: USA040361353

PATIENT
  Age: 48 Year
  Sex: Male

DRUGS (3)
  1. STRATTERA [Suspect]
     Indication: ATTENTION DEFICIT/HYPERACTIVITY DISORDER
     Dosage: 40 MG/3 DAY
     Dates: start: 20040303
  2. LIPITOR [Concomitant]
  3. RESTORIL [Concomitant]

REACTIONS (3)
  - DYSURIA [None]
  - EJACULATION DISORDER [None]
  - URINE ABNORMALITY [None]
